FAERS Safety Report 16871426 (Version 1)
Quarter: 2019Q3

REPORT INFORMATION
  Report Type: Spontaneous
  Country: US (occurrence: US)
  Receive Date: 20190806
  Receipt Date: 20190806
  Transmission Date: 20191007
  Serious: Yes (Hospitalization)
  Sender: FDA-Public Use
  Company Number: None

PATIENT
  Sex: Male

DRUGS (2)
  1. ABIRATERONE 250MG APOTEX [Suspect]
     Active Substance: ABIRATERONE
     Indication: PROSTATE CANCER
     Route: 048
     Dates: start: 20190703
  2. PREDNISONE. [Concomitant]
     Active Substance: PREDNISONE

REACTIONS (3)
  - Hot flush [None]
  - Peripheral swelling [None]
  - Urinary tract infection [None]
